FAERS Safety Report 20011622 (Version 1)
Quarter: 2021Q4

REPORT INFORMATION
  Report Type: Spontaneous
  Country: GB (occurrence: GB)
  Receive Date: 20211029
  Receipt Date: 20211029
  Transmission Date: 20220303
  Serious: Yes (Hospitalization)
  Sender: FDA-Public Use
  Company Number: None

PATIENT

DRUGS (8)
  1. PREDNISOLONE [Suspect]
     Active Substance: PREDNISOLONE
     Dosage: 10 MG, QD (MONTHLY) TABLET
  2. ABIRATERONE. [Suspect]
     Active Substance: ABIRATERONE ACETATE
     Dosage: 1000 MG, MONTHLY
  3. ALENDRONIC ACID [Suspect]
     Active Substance: ALENDRONIC ACID
     Dosage: 70 MG, WEEKLY
  4. CETIRIZINE [Concomitant]
     Active Substance: CETIRIZINE HYDROCHLORIDE
     Dosage: 10 MG, QD
  5. TRIPTORELIN [Concomitant]
     Active Substance: TRIPTORELIN
     Dosage: 1 DOSAGE FORM (1 IN 6 MONTH) LAST HAD 20/01/21, NEXT DUE 7/7/21
     Dates: end: 20210120
  6. PARAFFIN SOFT WHITE [Concomitant]
  7. PARAFFIN LIQUID [Concomitant]
  8. Zerocream [Concomitant]
     Indication: Dry skin
     Dosage: UNK, TWO OR THREE TIMES DAILY AND RUB IN WELL

REACTIONS (1)
  - Oedema [Unknown]
